FAERS Safety Report 23229303 (Version 1)
Quarter: 2023Q4

REPORT INFORMATION
  Report Type: Report from Study
  Country: US (occurrence: US)
  Receive Date: 20231127
  Receipt Date: 20231127
  Transmission Date: 20240110
  Serious: Yes (Hospitalization, Other)
  Sender: FDA-Public Use
  Company Number: US-ABBVIE-5509545

PATIENT
  Age: 69 Year
  Sex: Female

DRUGS (1)
  1. RINVOQ [Suspect]
     Active Substance: UPADACITINIB
     Indication: Psoriasis
     Dosage: RINVOQ ER,?STRENGTH:15MG
     Route: 048
     Dates: start: 202309, end: 20231028

REACTIONS (4)
  - Wrist fracture [Unknown]
  - Foot fracture [Unknown]
  - Craniofacial fracture [Unknown]
  - Fall [Unknown]

NARRATIVE: CASE EVENT DATE: 20231028
